FAERS Safety Report 7364527-5 (Version None)
Quarter: 2011Q1

REPORT INFORMATION
  Report Type: 
  Country: None (occurrence: None)
  Receive Date: 20110321
  Receipt Date: 20110315
  Transmission Date: 20110831
  Serious: Yes (Other)
  Sender: FDA-Public Use
  Company Number: FR-MERCK-1103FRA00088

PATIENT
  Age: 77 Year
  Sex: Male

DRUGS (10)
  1. CEFTAZIDIME [Concomitant]
     Indication: BRONCHITIS
     Route: 065
     Dates: start: 20090901
  2. TIOTROPIUM BROMIDE [Concomitant]
     Route: 048
     Dates: start: 20100105, end: 20100110
  3. ALBUTEROL SULFATE [Concomitant]
     Indication: CHRONIC OBSTRUCTIVE PULMONARY DISEASE
     Route: 041
     Dates: start: 20100105, end: 20100110
  4. IPRATROPIUM BROMIDE [Concomitant]
     Indication: CHRONIC OBSTRUCTIVE PULMONARY DISEASE
     Route: 041
  5. CIPROFLOXACIN HYDROCHLORIDE [Concomitant]
     Indication: BRONCHITIS
     Route: 065
     Dates: start: 20090901
  6. METHYLPREDNISOLONE SODIUM SUCCINATE [Concomitant]
     Indication: CHRONIC OBSTRUCTIVE PULMONARY DISEASE
     Route: 041
  7. AMIKACIN SULFATE [Concomitant]
     Indication: BRONCHITIS
     Route: 041
     Dates: start: 20100105, end: 20100110
  8. BUDESONIDE AND FORMOTEROL FUMARATE [Concomitant]
     Route: 055
  9. PRIMAXIN [Suspect]
     Indication: BRONCHITIS
     Route: 041
     Dates: start: 20100105, end: 20100113
  10. PRIMAXIN [Suspect]
     Route: 041
     Dates: start: 20090101, end: 20090101

REACTIONS (1)
  - LOCALISED OEDEMA [None]
